FAERS Safety Report 7424405-X (Version None)
Quarter: 2011Q2

REPORT INFORMATION
  Report Type: 
  Country: None (occurrence: None)
  Receive Date: 20110419
  Receipt Date: 20110412
  Transmission Date: 20111010
  Serious: Yes (Death, Life-Threatening)
  Sender: FDA-Public Use
  Company Number: DK-B.I. PHARMACEUTICALS,INC./RIDGEFIELD-2011-SW-00175DB

PATIENT
  Age: 98 Year
  Sex: Female

DRUGS (7)
  1. CITALOPRAM HYDROBROMIDE [Concomitant]
  2. ANTIPSYCHOTICS [Concomitant]
  3. TOLMIN [Concomitant]
  4. PERSANTIN [Suspect]
     Indication: THROMBOSIS PROPHYLAXIS
     Dosage: 2 ANZ
  5. SEDATIVE PRODUCTS [Concomitant]
  6. RISPERIDON [Concomitant]
  7. ASPIRIN [Concomitant]

REACTIONS (4)
  - LIFE EXPECTANCY SHORTENED [None]
  - POISONING [None]
  - TONGUE DISCOLOURATION [None]
  - DEATH [None]
